FAERS Safety Report 13587347 (Version 1)
Quarter: 2017Q2

REPORT INFORMATION
  Report Type: Spontaneous
  Country: IN (occurrence: IN)
  Receive Date: 20170526
  Receipt Date: 20170526
  Transmission Date: 20170830
  Serious: Yes (Death, Other)
  Sender: FDA-Public Use
  Company Number: IN-CELGENEUS-IND-20170507199

PATIENT
  Age: 64 Year
  Sex: Male

DRUGS (1)
  1. AZACITIDINE. [Suspect]
     Active Substance: AZACITIDINE
     Indication: MYELODYSPLASTIC SYNDROME
     Dosage: 75 MICROGRAM/SQ. METER
     Route: 058

REACTIONS (4)
  - Death [Fatal]
  - Pyoderma gangrenosum [Unknown]
  - Paronychia [Unknown]
  - Cellulitis [Unknown]
